FAERS Safety Report 16382800 (Version 2)
Quarter: 2019Q3

REPORT INFORMATION
  Report Type: Report from Study
  Country: FR (occurrence: FR)
  Receive Date: 20190603
  Receipt Date: 20190809
  Transmission Date: 20191004
  Serious: Yes (Other)
  Sender: FDA-Public Use
  Company Number: FR-MYLANLABS-2019M1051312

PATIENT
  Age: 50 Year
  Sex: Female

DRUGS (8)
  1. DILTIAZEM. [Interacting]
     Active Substance: DILTIAZEM
     Indication: PRODUCT USED FOR UNKNOWN INDICATION
     Route: 065
  2. CISPLATIN. [Concomitant]
     Active Substance: CISPLATIN
     Indication: ADRENOCORTICAL CARCINOMA
     Route: 065
  3. MITOTANE [Interacting]
     Active Substance: MITOTANE
     Dosage: FOR CYCLE 2
     Route: 065
  4. MITOTANE [Interacting]
     Active Substance: MITOTANE
     Indication: ADRENOCORTICAL CARCINOMA
     Dosage: FOR CYCLE 1
     Route: 065
  5. ETOPOSIDE. [Suspect]
     Active Substance: ETOPOSIDE
     Indication: ADRENOCORTICAL CARCINOMA
     Dosage: ON DAYS 1, 2 AND 3 OF EACH 3-WEEK CYCLE AT CYCLE 1
     Route: 042
  6. ETOPOSIDE. [Interacting]
     Active Substance: ETOPOSIDE
     Dosage: 300 MILLIGRAM/SQ. METER, QD
     Route: 042
  7. MITOTANE [Interacting]
     Active Substance: MITOTANE
     Dosage: FOR CYCLE 3 AND 4
     Route: 065
  8. MITOTANE [Interacting]
     Active Substance: MITOTANE
     Dosage: UNK
     Route: 065

REACTIONS (4)
  - Febrile bone marrow aplasia [Recovering/Resolving]
  - Drug clearance increased [Unknown]
  - Drug interaction [Unknown]
  - Drug clearance decreased [Unknown]
